FAERS Safety Report 18419118 (Version 16)
Quarter: 2023Q1

REPORT INFORMATION
  Report Type: Report from Study
  Country: CN (occurrence: CN)
  Receive Date: 20201023
  Receipt Date: 20230303
  Transmission Date: 20230418
  Serious: Yes (Other)
  Sender: FDA-Public Use
  Company Number: CN-ASTELLAS-2020US037301

PATIENT
  Age: 66 Year
  Sex: Male

DRUGS (10)
  1. ENZALUTAMIDE [Suspect]
     Active Substance: ENZALUTAMIDE
     Indication: Prostate cancer
     Dosage: UNK UNK, UNKNOWN FREQ.
     Route: 048
     Dates: start: 20200825, end: 20201020
  2. ENZALUTAMIDE [Suspect]
     Active Substance: ENZALUTAMIDE
     Dosage: UNK UNK, UNKNOWN FREQ.
     Route: 048
     Dates: start: 20210115
  3. LEUPROLIDE ACETATE [Concomitant]
     Active Substance: LEUPROLIDE ACETATE
     Indication: Prostate cancer
     Route: 058
     Dates: start: 20200825, end: 20201019
  4. CEFUROXIME [Concomitant]
     Active Substance: CEFUROXIME
     Indication: Dacryostenosis acquired
     Dosage: 0.25 G, TWICE DAILY
     Route: 048
     Dates: start: 20200922, end: 20201003
  5. CEFUROXIME [Concomitant]
     Active Substance: CEFUROXIME
     Indication: Pterygium
  6. TRIPTORELIN [Concomitant]
     Active Substance: TRIPTORELIN
     Indication: Prostate cancer
     Dosage: 15 MG, EVERY 12WEEK
     Route: 030
     Dates: start: 20201020
  7. LEVOFLOXACIN HYDROCHLORIDE [Concomitant]
     Active Substance: LEVOFLOXACIN HYDROCHLORIDE
     Indication: Dacryostenosis acquired
     Dosage: UNK UNK, 4-6 TIMES/DAY
     Route: 061
     Dates: start: 20200922, end: 20200929
  8. LEVOFLOXACIN HYDROCHLORIDE [Concomitant]
     Active Substance: LEVOFLOXACIN HYDROCHLORIDE
     Indication: Pterygium
  9. RECOMBINANT HUMAN EPIDERMAL GROWTH FACTOR DERIVATIVE [Concomitant]
     Indication: Dacryostenosis acquired
     Dosage: UNK UNK, 4-6 TIMES/DAY
     Route: 061
     Dates: start: 20200922, end: 20200929
  10. RECOMBINANT HUMAN EPIDERMAL GROWTH FACTOR DERIVATIVE [Concomitant]
     Indication: Pterygium

REACTIONS (1)
  - Hepatic function abnormal [Recovered/Resolved]

NARRATIVE: CASE EVENT DATE: 20201020
